FAERS Safety Report 13642434 (Version 1)
Quarter: 2017Q2

REPORT INFORMATION
  Report Type: Spontaneous
  Country: US (occurrence: US)
  Receive Date: 20170612
  Receipt Date: 20170612
  Transmission Date: 20170830
  Serious: No
  Sender: FDA-Public Use
  Company Number: US-SEPTODONT-201603436

PATIENT
  Age: 60 Year
  Sex: Female
  Weight: 63.5 kg

DRUGS (2)
  1. SEPTOCAINE AND EPINEPHRINE [Suspect]
     Active Substance: ARTICAINE HYDROCHLORIDE\EPINEPHRINE BITARTRATE
     Indication: LOCAL ANAESTHESIA
     Dosage: 1 CARTRIDGE ADMINISTERED TO MENTAL FORAMEN AND TOOTH #20, 1/2 CARTRIDGE ADMINISTERED TO TOOTH #18
     Route: 004
  2. ORAVERSE [Suspect]
     Active Substance: PHENTOLAMINE MESYLATE
     Indication: ANAESTHESIA REVERSAL
     Dosage: 1 CARTRIDGE ADMINISTERED TO MENTAL FORAMEN AND TOOTH #20, 1/2 CARTRIDGE ADMINISTERED TO TOOTH #18
     Route: 004

REACTIONS (6)
  - Oral discomfort [Recovered/Resolved]
  - Soft tissue swelling [Not Recovered/Not Resolved]
  - Compulsive cheek biting [Recovered/Resolved]
  - Oedema mouth [Not Recovered/Not Resolved]
  - Mouth swelling [Not Recovered/Not Resolved]
  - Post procedural swelling [Not Recovered/Not Resolved]

NARRATIVE: CASE EVENT DATE: 20160608
